FAERS Safety Report 8291309-2 (Version None)
Quarter: 2012Q2

REPORT INFORMATION
  Report Type: 
  Country: None (occurrence: None)
  Receive Date: 20120412
  Receipt Date: 20120406
  Transmission Date: 20120825
  Serious: Yes (Other)
  Sender: FDA-Public Use
  Company Number: 2012SP018443

PATIENT
  Age: 70 Year
  Sex: Male
  Weight: 86.4 kg

DRUGS (31)
  1. DAUNORUBICIN HCL [Concomitant]
  2. PERIDEX [Concomitant]
  3. HYDROCHLOROTHIAZIDE [Concomitant]
  4. LASIX [Concomitant]
  5. LIDOCAINE [Concomitant]
  6. OXYCODONE HCL [Concomitant]
  7. NYSTATIN [Concomitant]
  8. CYTARABINE [Concomitant]
  9. TRAZODONE HCL [Concomitant]
  10. POSACONAZOLE [Suspect]
     Indication: PROPHYLAXIS
     Dosage: 300 MG;BID;IV
     Route: 042
     Dates: start: 20120327, end: 20120401
  11. POSACONAZOLE [Suspect]
     Indication: FUNGAL INFECTION
     Dosage: 300 MG;BID;IV
     Route: 042
     Dates: start: 20120327, end: 20120401
  12. POSACONAZOLE [Suspect]
     Dosage: 200 MG;TID;PO
     Route: 048
     Dates: start: 20120402, end: 20120405
  13. DEBROX [Concomitant]
  14. COLACE [Concomitant]
  15. SIMVASTATIN [Concomitant]
  16. CALCIUM GLUCONATE [Concomitant]
  17. VANCOMYCIN [Concomitant]
  18. OMEPRAZOLE [Concomitant]
  19. SENNA [Concomitant]
  20. TYLENOL (CAPLET) [Concomitant]
  21. READI-CAT [Concomitant]
  22. MICAFUNGIN [Concomitant]
  23. CEFTAZIDIME [Concomitant]
  24. HUMULIN R [Concomitant]
  25. ALLOPURINOL [Concomitant]
  26. DUONEB [Concomitant]
  27. IMODIUM [Concomitant]
  28. PROCHLORPERAZINE [Concomitant]
  29. ACETYLSALICYLIC ACID SRT [Concomitant]
  30. ONDANSETRON [Concomitant]
  31. DEMEROL [Concomitant]

REACTIONS (12)
  - BLOOD BILIRUBIN INCREASED [None]
  - THROMBOCYTOPENIA [None]
  - FLUID OVERLOAD [None]
  - MUSCLE STRAIN [None]
  - CHOLESTASIS [None]
  - ALANINE AMINOTRANSFERASE INCREASED [None]
  - DIARRHOEA [None]
  - ASPARTATE AMINOTRANSFERASE INCREASED [None]
  - HEPATIC STEATOSIS [None]
  - ANAEMIA [None]
  - CHOLELITHIASIS [None]
  - PYREXIA [None]
